FAERS Safety Report 22987188 (Version 3)
Quarter: 2023Q4

REPORT INFORMATION
  Report Type: Other
  Country: US (occurrence: None)
  Receive Date: 20230926
  Receipt Date: 20231124
  Transmission Date: 20240110
  Serious: Yes (Hospitalization)
  Sender: FDA-Public Use
  Company Number: US-ROCHE-3427763

PATIENT
  Age: 8 Month
  Sex: Male
  Weight: 6.3 kg

DRUGS (2)
  1. EVRYSDI [Suspect]
     Active Substance: RISDIPLAM
     Indication: Spinal muscular atrophy
     Dosage: STRENGTH: 0.75 MG/ML
     Route: 048
     Dates: start: 20230908
  2. EVRYSDI [Suspect]
     Active Substance: RISDIPLAM

REACTIONS (4)
  - Secretion discharge [Recovering/Resolving]
  - Pharyngeal disorder [Recovering/Resolving]
  - Wheezing [Recovering/Resolving]
  - Ill-defined disorder [Unknown]

NARRATIVE: CASE EVENT DATE: 20231114
